FAERS Safety Report 5565149-9 (Version None)
Quarter: 2007Q4

REPORT INFORMATION
  Report Type: 
  Country: None (occurrence: None)
  Receive Date: 20071213
  Receipt Date: 20071213
  Transmission Date: 20080405
  Serious: Yes (Other)
  Sender: FDA-Public Use
  Company Number: None

PATIENT
  Sex: Male
  Weight: 72.5755 kg

DRUGS (1)
  1. MIRAPEX [Suspect]
     Indication: PARKINSON'S DISEASE
     Dosage: 0.25MG 3 TIMES A DAY PO
     Route: 048
     Dates: start: 20071031, end: 20071117

REACTIONS (6)
  - ABNORMAL DREAMS [None]
  - ADVERSE DRUG REACTION [None]
  - CONFUSIONAL STATE [None]
  - DIZZINESS [None]
  - HALLUCINATION [None]
  - THINKING ABNORMAL [None]
